FAERS Safety Report 6448198-8 (Version None)
Quarter: 2009Q4

REPORT INFORMATION
  Report Type: 
  Country: None (occurrence: None)
  Receive Date: 20091120
  Receipt Date: 20091110
  Transmission Date: 20100525
  Serious: Yes (Hospitalization)
  Sender: FDA-Public Use
  Company Number: US-PFIZER INC-2009288660

PATIENT
  Age: 65 Year
  Sex: Male
  Weight: 90 kg

DRUGS (12)
  1. BLINDED *NO SUBJECT DRUG [Suspect]
     Indication: TRANSITIONAL CELL CARCINOMA
     Dosage: 50 MG, 3 DAILY
     Route: 048
     Dates: start: 20090120, end: 20090825
  2. BLINDED *PLACEBO [Suspect]
     Indication: TRANSITIONAL CELL CARCINOMA
     Dosage: 50 MG, 3 DAILY
     Route: 048
     Dates: start: 20090120, end: 20090825
  3. BLINDED SUNITINIB MALATE [Suspect]
     Indication: TRANSITIONAL CELL CARCINOMA
     Dosage: 50 MG, 3 DAILY
     Route: 048
     Dates: start: 20090120, end: 20090825
  4. SUNITINIB MALATE [Suspect]
     Indication: TRANSITIONAL CELL CARCINOMA
     Dosage: 25 MG, 4 DAILY
     Route: 048
     Dates: start: 20090908
  5. ACTOS [Concomitant]
     Dosage: UNK
     Dates: start: 20080715
  6. CALCIUM [Concomitant]
     Dosage: UNK
     Dates: start: 20080916
  7. CUMADIN [Concomitant]
     Dosage: UNK
     Dates: start: 20060609
  8. COZAAR [Concomitant]
     Dosage: UNK
     Dates: start: 20091020
  9. SIMVASTATIN [Concomitant]
     Dosage: UNK
     Dates: start: 20090414
  10. VERAPAMIL [Concomitant]
     Dosage: UNK
     Dates: start: 20060609
  11. VITAMIN B-12 [Concomitant]
     Dosage: UNK
     Dates: start: 20090707
  12. VITAMIN D [Concomitant]
     Dosage: UNK
     Dates: start: 20080916

REACTIONS (1)
  - PYREXIA [None]
